FAERS Safety Report 6167051-0 (Version None)
Quarter: 2009Q2

REPORT INFORMATION
  Report Type: 
  Country: None (occurrence: None)
  Receive Date: 20090424
  Receipt Date: 20090421
  Transmission Date: 20091009
  Serious: Yes (Other)
  Sender: FDA-Public Use
  Company Number: JP-BAYER-200910089BYL

PATIENT
  Age: 61 Year
  Sex: Male
  Weight: 61 kg

DRUGS (8)
  1. NEXAVAR [Suspect]
     Indication: RENAL CELL CARCINOMA STAGE IV
     Dosage: TOTAL DAILY DOSE: 800 MG  UNIT DOSE: 200 MG
     Route: 048
     Dates: start: 20081209, end: 20081228
  2. NEXAVAR [Suspect]
     Dosage: UNIT DOSE: 200 MG
     Route: 048
     Dates: start: 20090107, end: 20090126
  3. NEXAVAR [Suspect]
     Dosage: UNIT DOSE: 200 MG
     Route: 048
     Dates: start: 20090226, end: 20090308
  4. DOGMATYL [Concomitant]
     Indication: NAUSEA
     Route: 048
     Dates: start: 20081204, end: 20090106
  5. SENNOSIDE [Concomitant]
     Indication: POST PROCEDURAL CONSTIPATION
     Route: 048
     Dates: start: 20081121, end: 20081225
  6. NAUZELIN [Concomitant]
     Indication: NAUSEA
     Route: 048
     Dates: start: 20081126, end: 20081225
  7. TAKEPRON [Concomitant]
     Indication: NAUSEA
     Route: 048
     Dates: start: 20081206, end: 20090106
  8. LAMISIL [Concomitant]
     Indication: TINEA PEDIS
     Route: 061
     Dates: start: 20081217, end: 20081225

REACTIONS (6)
  - ALANINE AMINOTRANSFERASE INCREASED [None]
  - ASPARTATE AMINOTRANSFERASE INCREASED [None]
  - HYPERTENSION [None]
  - LIVER DISORDER [None]
  - PALMAR-PLANTAR ERYTHRODYSAESTHESIA SYNDROME [None]
  - RASH [None]
